FAERS Safety Report 8020445-0 (Version None)
Quarter: 2012Q1

REPORT INFORMATION
  Report Type: 
  Country: None (occurrence: None)
  Receive Date: 20120103
  Receipt Date: 20111219
  Transmission Date: 20120608
  Serious: Yes (Hospitalization)
  Sender: FDA-Public Use
  Company Number: US-WATSON-2011-22572

PATIENT
  Age: 26 Year
  Sex: Female

DRUGS (2)
  1. BETAMETHASONE [Suspect]
     Indication: MATERNAL THERAPY TO ENHANCE FOETAL LUNG MATURITY
  2. HALOPERIDOL [Suspect]
     Indication: AGITATION

REACTIONS (3)
  - HYPERAMMONAEMIA [None]
  - MATERNAL EXPOSURE DURING PREGNANCY [None]
  - COMA [None]
